FAERS Safety Report 18202319 (Version 1)
Quarter: 2020Q3

REPORT INFORMATION
  Report Type: Report from Study
  Country: IT (occurrence: IT)
  Receive Date: 20200827
  Receipt Date: 20200827
  Transmission Date: 20201103
  Serious: Yes (Other)
  Sender: FDA-Public Use
  Company Number: IT-ACCORD-197544

PATIENT
  Age: 60 Year
  Sex: Male

DRUGS (1)
  1. PACLITAXEL ACCORD HEALTHCARE ITALY [Suspect]
     Active Substance: PACLITAXEL
     Indication: THYMOMA MALIGNANT
     Route: 042
     Dates: start: 20190923

REACTIONS (3)
  - Balance disorder [Recovering/Resolving]
  - Paraesthesia [Recovering/Resolving]
  - Gravitational oedema [Recovering/Resolving]

NARRATIVE: CASE EVENT DATE: 20191021
